FAERS Safety Report 13226368 (Version 3)
Quarter: 2017Q1

REPORT INFORMATION
  Report Type: Spontaneous
  Country: PT (occurrence: PT)
  Receive Date: 20170213
  Receipt Date: 20170330
  Transmission Date: 20170428
  Serious: Yes (Other)
  Sender: FDA-Public Use
  Company Number: PT-PFIZER INC-2017050669

PATIENT
  Age: 46 Year
  Sex: Male

DRUGS (3)
  1. INSULIN [Concomitant]
     Active Substance: INSULIN NOS
     Indication: TYPE 2 DIABETES MELLITUS
     Dosage: 30 IU, AS NEEDED
  2. CAVERJECT [Suspect]
     Active Substance: ALPROSTADIL
     Indication: PEYRONIE^S DISEASE
     Dosage: 20 UG, AS NEEDED
     Route: 017
     Dates: start: 2016
  3. METFORMIN [Concomitant]
     Active Substance: METFORMIN HYDROCHLORIDE
     Indication: TYPE 2 DIABETES MELLITUS
     Dosage: 1000 MG, 1X/DAY
     Route: 048

REACTIONS (6)
  - Injection site pain [Recovered/Resolved]
  - Product use issue [Unknown]
  - Product quality issue [Recovered/Resolved]
  - Urethral haemorrhage [Recovered/Resolved]
  - Wrong technique in product usage process [Unknown]
  - Drug ineffective [Recovered/Resolved]

NARRATIVE: CASE EVENT DATE: 2016
